FAERS Safety Report 25423385 (Version 1)
Quarter: 2025Q2

REPORT INFORMATION
  Report Type: Spontaneous
  Country: GB (occurrence: GB)
  Receive Date: 20250611
  Receipt Date: 20250611
  Transmission Date: 20250717
  Serious: Yes (Other)
  Sender: ORGANON
  Company Number: None

PATIENT
  Age: 78 Year
  Sex: Female
  Weight: 79 kg

DRUGS (4)
  1. EZETIMIBE [Suspect]
     Active Substance: EZETIMIBE
     Dosage: ONE TO BE TAKEN ONCE DAILY
     Dates: start: 20250403
  2. BEMPEDOIC ACID [Suspect]
     Active Substance: BEMPEDOIC ACID
     Dosage: ONE TO BE TAKEN ONCE DAILY
     Dates: start: 20250403
  3. FLECAINIDE [Concomitant]
     Active Substance: FLECAINIDE
     Indication: Atrial flutter
     Dosage: HALF A TABLET TO BE TAKEN TWICE A DAY AS REQUIRED FOR FLUTTERS
     Dates: start: 20250403
  4. DESLORATADINE [Concomitant]
     Active Substance: DESLORATADINE
     Dosage: ONE TO BE TAKEN EACH DAY
     Dates: start: 20250403

REACTIONS (4)
  - Joint swelling [Unknown]
  - Hypertension [Unknown]
  - Malaise [Unknown]
  - Headache [Unknown]

NARRATIVE: CASE EVENT DATE: 20250403
